FAERS Safety Report 21946965 (Version 2)
Quarter: 2023Q1

REPORT INFORMATION
  Report Type: Spontaneous
  Country: JP (occurrence: JP)
  Receive Date: 20230202
  Receipt Date: 20230307
  Transmission Date: 20230418
  Serious: Yes (Hospitalization, Other)
  Sender: FDA-Public Use
  Company Number: JP-SA-2023SA025373

PATIENT
  Age: 74 Year
  Sex: Male

DRUGS (9)
  1. CLOPIDOGREL BISULFATE [Suspect]
     Active Substance: CLOPIDOGREL BISULFATE
     Indication: Antiplatelet therapy
     Dosage: 75 MG, QD
     Route: 065
  2. HEPARIN [Suspect]
     Active Substance: HEPARIN SODIUM
     Indication: Product used for unknown indication
     Dosage: 6000IU
     Route: 065
  3. HEPARIN [Suspect]
     Active Substance: HEPARIN SODIUM
     Dosage: 2000IU
     Route: 065
  4. CILOSTAZOL [Suspect]
     Active Substance: CILOSTAZOL
     Indication: Antiplatelet therapy
     Dosage: 200MG; 1D
     Route: 065
  5. FENTANYL [Concomitant]
     Active Substance: FENTANYL
     Indication: Induction of anaesthesia
     Route: 065
  6. REMIFENTANIL [Concomitant]
     Active Substance: REMIFENTANIL
     Indication: Maintenance of anaesthesia
     Dosage: 0.4UG/KG; 1MIN
     Route: 065
  7. REMIFENTANIL [Concomitant]
     Active Substance: REMIFENTANIL
     Dosage: 0.3UG/KG; 1MIN
     Route: 065
  8. PROPOFOL [Concomitant]
     Active Substance: PROPOFOL
     Indication: Induction and maintenance of anaesthesia
     Dosage: INDUCTION
     Route: 065
  9. PROPOFOL [Concomitant]
     Active Substance: PROPOFOL
     Dosage: ANESTHESIA WAS MAINTAINED USING PROPOFOL AT TARGET CONCENTRATION OF 2.0?3.0 ?G/ML
     Route: 065

REACTIONS (3)
  - Tongue injury [Recovered/Resolved]
  - Tongue haemorrhage [Recovered/Resolved]
  - Tongue haematoma [Recovered/Resolved]
